FAERS Safety Report 12117640 (Version 1)
Quarter: 2016Q1

REPORT INFORMATION
  Report Type: Spontaneous
  Country: US (occurrence: US)
  Receive Date: 20160226
  Receipt Date: 20160226
  Transmission Date: 20160526
  Serious: No
  Sender: FDA-Public Use
  Company Number: US-ASTRAZENECA-2016SE19879

PATIENT
  Sex: Female

DRUGS (1)
  1. PRILOSEC OTC [Suspect]
     Active Substance: OMEPRAZOLE MAGNESIUM
     Dosage: 1 TABLET, MORNING FOR 1-2 YR PER GASTROENTEROLOGIST
     Route: 048

REACTIONS (3)
  - Cough [Unknown]
  - Dysphonia [Unknown]
  - Oropharyngeal discomfort [Unknown]
